FAERS Safety Report 11468024 (Version 1)
Quarter: 2015Q3

REPORT INFORMATION
  Report Type: Spontaneous
  Country: US (occurrence: US)
  Receive Date: 20150908
  Receipt Date: 20150908
  Transmission Date: 20151125
  Serious: No
  Sender: FDA-Public Use
  Company Number: US-PFIZER INC-2015294833

PATIENT
  Age: 47 Year
  Sex: Female

DRUGS (1)
  1. DUAVEE [Suspect]
     Active Substance: BAZEDOXIFENE ACETATE\ESTROGENS, CONJUGATED
     Indication: DYSPAREUNIA
     Dosage: 1 DF, DAILY
     Route: 048

REACTIONS (3)
  - Therapeutic response unexpected [Unknown]
  - Pre-existing condition improved [Unknown]
  - Off label use [Not Recovered/Not Resolved]
